FAERS Safety Report 17663685 (Version 1)
Quarter: 2020Q2

REPORT INFORMATION
  Report Type: Spontaneous
  Country: CA (occurrence: CA)
  Receive Date: 20200414
  Receipt Date: 20200414
  Transmission Date: 20200713
  Serious: Yes (Hospitalization, Other)
  Sender: FDA-Public Use
  Company Number: CA-RECORDATI RARE DISEASES-2082807

PATIENT
  Age: 63 Year
  Sex: Male

DRUGS (6)
  1. SIGNIFOR [Suspect]
     Active Substance: PASIREOTIDE DIASPARTATE
     Route: 058
     Dates: start: 20160816, end: 20160901
  2. SIGNIFOR [Suspect]
     Active Substance: PASIREOTIDE DIASPARTATE
     Route: 058
     Dates: start: 20160902
  3. KETOCONAZOLE. [Suspect]
     Active Substance: KETOCONAZOLE
     Route: 065
  4. APO GLICLAZIDE [Concomitant]
  5. SIGNIFOR [Suspect]
     Active Substance: PASIREOTIDE DIASPARTATE
     Indication: PITUITARY-DEPENDENT CUSHING^S SYNDROME
     Route: 058
     Dates: start: 20160608, end: 20160815
  6. CORTEF [Suspect]
     Active Substance: HYDROCORTISONE
     Route: 042

REACTIONS (31)
  - Wrong technique in product usage process [Unknown]
  - Malaise [Unknown]
  - Asthenia [Unknown]
  - Blood pressure increased [Unknown]
  - Blood glucose increased [Recovered/Resolved]
  - Headache [Unknown]
  - Pneumonia [Unknown]
  - Malignant neoplasm progression [Unknown]
  - Migraine [Recovered/Resolved]
  - Hypogonadism [Unknown]
  - Blood pressure systolic decreased [Unknown]
  - Dizziness [Not Recovered/Not Resolved]
  - Urinary tract infection [Unknown]
  - Blood pressure increased [Recovered/Resolved]
  - Hypoglycaemia [Unknown]
  - Cortisol increased [Recovering/Resolving]
  - Vomiting [Unknown]
  - Cardiovascular disorder [Unknown]
  - Fatigue [Recovered/Resolved]
  - Hypothyroidism [Unknown]
  - Pituitary tumour [Unknown]
  - Neoplasm progression [Unknown]
  - Incorrect dose administered [Unknown]
  - Hypotension [Unknown]
  - Nausea [Unknown]
  - Nephrolithiasis [Unknown]
  - Heart rate increased [Unknown]
  - Blood glucose decreased [Unknown]
  - Hepatic enzyme increased [Unknown]
  - Blood pressure decreased [Recovered/Resolved]
  - Thyroid disorder [Recovering/Resolving]

NARRATIVE: CASE EVENT DATE: 20160608
